FAERS Safety Report 5495213-4 (Version None)
Quarter: 2007Q4

REPORT INFORMATION
  Report Type: 
  Country: None (occurrence: None)
  Receive Date: 20071024
  Receipt Date: 20071015
  Transmission Date: 20080405
  Serious: Yes (Other)
  Sender: FDA-Public Use
  Company Number: US-PFIZER INC-2006052189

PATIENT
  Sex: Male
  Weight: 94 kg

DRUGS (6)
  1. BEXTRA [Suspect]
     Indication: ARTHRALGIA
  2. BEXTRA [Suspect]
     Indication: BACK PAIN
  3. ULTRACET [Concomitant]
  4. NAPROSYN [Concomitant]
  5. ANTIBIOTICS [Concomitant]
  6. ALL OTHER THERAPEUTIC PRODUCTS [Concomitant]

REACTIONS (1)
  - STEVENS-JOHNSON SYNDROME [None]
